FAERS Safety Report 17604295 (Version 1)
Quarter: 2020Q1

REPORT INFORMATION
  Report Type: Spontaneous
  Country: US (occurrence: US)
  Receive Date: 20200331
  Receipt Date: 20200331
  Transmission Date: 20200409
  Serious: No
  Sender: FDA-Public Use
  Company Number: US-TARO-2019TAR00365

PATIENT
  Sex: Female

DRUGS (1)
  1. MICONAZOLE NITRATE VAGINAL CREAM 4% 3 DAY CREAM [Suspect]
     Active Substance: MICONAZOLE NITRATE
     Dosage: UNK
     Route: 067
     Dates: start: 201905, end: 201905

REACTIONS (1)
  - Drug ineffective [Recovered/Resolved]

NARRATIVE: CASE EVENT DATE: 201905
